FAERS Safety Report 7115310-7 (Version None)
Quarter: 2010Q4

REPORT INFORMATION
  Report Type: 
  Country: None (occurrence: None)
  Receive Date: 20101116
  Receipt Date: 20101116
  Transmission Date: 20110411
  Serious: No
  Sender: FDA-Public Use
  Company Number: None

PATIENT
  Age: 49 Year
  Sex: Male

DRUGS (1)
  1. MIRAPEX [Suspect]
     Indication: RESTLESS LEGS SYNDROME
     Dosage: 0.25 MG 4 PER DAY ORAL
     Route: 048

REACTIONS (10)
  - CONDITION AGGRAVATED [None]
  - DRUG DEPENDENCE [None]
  - DRUG EFFECT DECREASED [None]
  - DYSKINESIA [None]
  - ECONOMIC PROBLEM [None]
  - GAMBLING [None]
  - HYPERSOMNIA [None]
  - INSOMNIA [None]
  - RESTLESS LEGS SYNDROME [None]
  - WITHDRAWAL SYNDROME [None]
